FAERS Safety Report 5169018-8 (Version None)
Quarter: 2006Q4

REPORT INFORMATION
  Report Type: 
  Country: None (occurrence: None)
  Receive Date: 20061204
  Receipt Date: 20061121
  Transmission Date: 20070319
  Serious: Yes (Hospitalization, Other)
  Sender: FDA-Public Use
  Company Number: 2006AP000676

PATIENT
  Age: 79 Year
  Sex: Female

DRUGS (9)
  1. PAROXETINE HYDROCHLORIDE [Suspect]
     Indication: DEPRESSION
     Dosage: 10 MG; QD
  2. RISPERIDONE [Suspect]
     Dosage: 0.25 MG; BID; PO
     Route: 048
  3. AMLODIPINE [Concomitant]
  4. GALANTAMINE HYDROBROMIDE [Concomitant]
  5. HYDROBROMIDE [Concomitant]
  6. GALANTAMINE HYDROBROMIDE [Concomitant]
  7. HYDROBROMIDE DOCUSATE SODIUM [Concomitant]
  8. CELECOXIB [Concomitant]
  9. CALCIUM CITRATE [Concomitant]

REACTIONS (9)
  - ANAEMIA [None]
  - CEREBRAL ATROPHY [None]
  - DRUG INTERACTION [None]
  - HYPOTHERMIA [None]
  - LETHARGY [None]
  - MENTAL STATUS CHANGES [None]
  - MUCOSAL DRYNESS [None]
  - ORAL INTAKE REDUCED [None]
  - THROMBOCYTOPENIA [None]
